FAERS Safety Report 9170180 (Version 1)
Quarter: 2013Q1

REPORT INFORMATION
  Report Type: Spontaneous
  Country: US (occurrence: None)
  Receive Date: 20130315
  Receipt Date: 20130315
  Transmission Date: 20140127
  Serious: Yes (Other)
  Sender: FDA-Public Use
  Company Number: None

PATIENT
  Age: 54 Year
  Sex: Female
  Weight: 99.79 kg

DRUGS (2)
  1. TAMOXIFEN [Suspect]
     Indication: BREAST CANCER
     Dosage: 20 - 12.5 TABLETS RX 4/03/12
     Dates: start: 20110401, end: 2011
  2. GLIPIZIDE [Suspect]
     Indication: TYPE 2 DIABETES MELLITUS
     Dosage: 10 MG 180 TABLETS RX 12/02/12
     Dates: start: 20051111, end: 201303

REACTIONS (4)
  - Blood pressure increased [None]
  - Uterine haemorrhage [None]
  - Uterine polyp [None]
  - Uterine enlargement [None]
